FAERS Safety Report 8999306 (Version 1)
Quarter: 2013Q1

REPORT INFORMATION
  Report Type: Spontaneous
  Country: CA (occurrence: CA)
  Receive Date: 20130103
  Receipt Date: 20130103
  Transmission Date: 20140127
  Serious: Yes (Other)
  Sender: FDA-Public Use
  Company Number: CA-ASTRAZENECA-2012SE92416

PATIENT
  Age: 59 Year
  Sex: Male

DRUGS (4)
  1. SYMBICORT TURBUHALER [Suspect]
     Indication: ASTHMA
     Dosage: 400MCG,TWO TIMES A DAY
     Route: 055
     Dates: start: 20090620
  2. VENTOLIN [Concomitant]
     Dosage: TWO PUFFS QID PRN
  3. SALBUTAMOL [Concomitant]
  4. CELLCEPT [Concomitant]

REACTIONS (2)
  - Chest discomfort [Recovered/Resolved]
  - Drug ineffective [Recovered/Resolved]
